FAERS Safety Report 7578132-9 (Version None)
Quarter: 2011Q2

REPORT INFORMATION
  Report Type: 
  Country: None (occurrence: None)
  Receive Date: 20110628
  Receipt Date: 20110607
  Transmission Date: 20111010
  Serious: Yes (Hospitalization)
  Sender: FDA-Public Use
  Company Number: A0870678A

PATIENT
  Age: 59 Year
  Sex: Female
  Weight: 80.9 kg

DRUGS (14)
  1. ZANTAC [Concomitant]
  2. NITRO-DUR [Concomitant]
  3. NITROGLYCERIN [Concomitant]
  4. AVANDIA [Suspect]
     Dosage: 4MG PER DAY
     Route: 048
     Dates: start: 19990101, end: 20040101
  5. ASPIRIN [Concomitant]
  6. ZESTRIL [Concomitant]
  7. REGLAN [Concomitant]
  8. PLAVIX [Concomitant]
  9. LASIX [Concomitant]
  10. COZAAR [Concomitant]
  11. NEXIUM [Concomitant]
  12. PRILOSEC [Concomitant]
  13. INSULIN [Concomitant]
  14. LOPRESSOR [Concomitant]

REACTIONS (4)
  - CORONARY ARTERY DISEASE [None]
  - MYOCARDIAL INFARCTION [None]
  - ANGINA PECTORIS [None]
  - CARDIAC FAILURE CONGESTIVE [None]
